FAERS Safety Report 15486360 (Version 5)
Quarter: 2018Q4

REPORT INFORMATION
  Report Type: Report from Study
  Country: CA (occurrence: CA)
  Receive Date: 20181011
  Receipt Date: 20181204
  Transmission Date: 20190205
  Serious: Yes (Hospitalization, Other)
  Sender: FDA-Public Use
  Company Number: CA-ROCHE-2195389

PATIENT
  Age: 50 Year
  Sex: Male
  Weight: 90.8 kg

DRUGS (1)
  1. OCREVUS [Suspect]
     Active Substance: OCRELIZUMAB
     Indication: RELAPSING-REMITTING MULTIPLE SCLEROSIS
     Dosage: 1.00 X 300 MG DAY 1, 15 THEN EVERY SIX MONTHS
     Route: 042
     Dates: start: 20180409

REACTIONS (11)
  - Pyrexia [Recovered/Resolved]
  - Malaise [Unknown]
  - Balance disorder [Unknown]
  - Feeling hot [Unknown]
  - Infection [Not Recovered/Not Resolved]
  - Feeling cold [Unknown]
  - Hyperhidrosis [Unknown]
  - Infection [Not Recovered/Not Resolved]
  - Hemiparesis [Unknown]
  - Movement disorder [Not Recovered/Not Resolved]
  - Fall [Unknown]

NARRATIVE: CASE EVENT DATE: 20181003
